FAERS Safety Report 7644282-1 (Version None)
Quarter: 2011Q3

REPORT INFORMATION
  Report Type: 
  Country: None (occurrence: None)
  Receive Date: 20110729
  Receipt Date: 20110725
  Transmission Date: 20111222
  Serious: Yes (Hospitalization)
  Sender: FDA-Public Use
  Company Number: PHHO2011KR10530

PATIENT
  Sex: Male
  Weight: 50 kg

DRUGS (1)
  1. EVEROLIMUS [Suspect]
     Indication: THYROID CANCER
     Dosage: 5 MG, QD
     Route: 048
     Dates: start: 20110421, end: 20110607

REACTIONS (1)
  - ILEAL ULCER [None]
